FAERS Safety Report 4704354-8 (Version None)
Quarter: 2005Q2

REPORT INFORMATION
  Report Type: 
  Country: None (occurrence: None)
  Receive Date: 20050630
  Receipt Date: 20050623
  Transmission Date: 20051028
  Serious: Yes (Congenital Anomaly)
  Sender: FDA-Public Use
  Company Number: US-JNJFOC-20050606556

PATIENT

DRUGS (1)
  1. TOPAMAX [Suspect]

REACTIONS (1)
  - UPPER LIMB DEFORMITY [None]
